FAERS Safety Report 15258965 (Version 2)
Quarter: 2018Q3

REPORT INFORMATION
  Report Type: Spontaneous
  Country: KR (occurrence: KR)
  Receive Date: 20180809
  Receipt Date: 20180813
  Transmission Date: 20181010
  Serious: Yes (Hospitalization, Other)
  Sender: FDA-Public Use
  Company Number: KR-009507513-1808KOR002143

PATIENT
  Sex: Female

DRUGS (3)
  1. KEYTRUDA [Suspect]
     Active Substance: PEMBROLIZUMAB
     Dosage: UNK
     Dates: start: 20180730, end: 20180730
  2. KEYTRUDA [Suspect]
     Active Substance: PEMBROLIZUMAB
     Indication: LUNG CANCER METASTATIC
     Dosage: UNK
     Dates: start: 20180614, end: 20180614
  3. KEYTRUDA [Suspect]
     Active Substance: PEMBROLIZUMAB
     Dosage: UNK
     Dates: start: 20180710, end: 20180710

REACTIONS (4)
  - Vasopressive therapy [Unknown]
  - Cancer surgery [Unknown]
  - Central venous catheterisation [Unknown]
  - Adverse event [Unknown]

NARRATIVE: CASE EVENT DATE: 2018
